FAERS Safety Report 10420815 (Version 1)
Quarter: 2014Q3

REPORT INFORMATION
  Report Type: Spontaneous
  Country: US (occurrence: None)
  Receive Date: 20140829
  Receipt Date: 20140829
  Transmission Date: 20150326
  Serious: No
  Sender: FDA-Public Use
  Company Number: None

PATIENT
  Age: 21 Year
  Sex: Female

DRUGS (1)
  1. ESTRADIOL/NORETHINDRONE ACETATE TRANSDERMAL SYSTEM [Suspect]
     Active Substance: ESTRADIOL\NORETHINDRONE ACETATE
     Indication: HORMONE REPLACEMENT THERAPY
     Dosage: 1 TAB  QD  ORAL
     Route: 048
     Dates: start: 20140719, end: 20140802

REACTIONS (4)
  - Product compounding quality issue [None]
  - Menopausal symptoms [None]
  - Insomnia [None]
  - Product quality issue [None]

NARRATIVE: CASE EVENT DATE: 20140802
